FAERS Safety Report 8603112-1 (Version None)
Quarter: 2012Q3

REPORT INFORMATION
  Report Type: 
  Country: None (occurrence: None)
  Receive Date: 20120817
  Receipt Date: 20120123
  Transmission Date: 20120928
  Serious: No
  Sender: FDA-Public Use
  Company Number: US-GLAXOSMITHKLINE-A0962993A

PATIENT
  Age: 37 Year
  Sex: Male

DRUGS (1)
  1. TAGAMET [Suspect]
     Indication: GASTROINTESTINAL DISORDER

REACTIONS (3)
  - PALPITATIONS [None]
  - DYSPNOEA [None]
  - CHEST PAIN [None]
